FAERS Safety Report 14572049 (Version 3)
Quarter: 2018Q2

REPORT INFORMATION
  Report Type: Spontaneous
  Country: US (occurrence: US)
  Receive Date: 20180226
  Receipt Date: 20180430
  Transmission Date: 20180711
  Serious: No
  Sender: FDA-Public Use
  Company Number: US-ASTRAZENECA-2018SE21243

PATIENT
  Age: 81 Year
  Sex: Male
  Weight: 63.5 kg

DRUGS (13)
  1. AMLODIPINE [Concomitant]
     Active Substance: AMLODIPINE BESYLATE
     Route: 048
  2. VITAMIN D [Concomitant]
     Active Substance: CHOLECALCIFEROL
     Route: 048
  3. QVAR [Concomitant]
     Active Substance: BECLOMETHASONE DIPROPIONATE
     Indication: COUGH
     Route: 055
     Dates: start: 201712
  4. BEVESPI AEROSPHERE [Suspect]
     Active Substance: FORMOTEROL FUMARATE\GLYCOPYRROLATE
     Indication: COUGH
     Dosage: 9/4.8MCG TWO INHALATIONS TWICE A DAY
     Route: 055
     Dates: start: 201712
  5. LOSARTAN. [Concomitant]
     Active Substance: LOSARTAN
     Route: 048
  6. ATENOLOL. [Suspect]
     Active Substance: ATENOLOL
     Indication: CARDIAC DISORDER
     Route: 048
     Dates: start: 1998
  7. LIPITOR [Concomitant]
     Active Substance: ATORVASTATIN CALCIUM
     Route: 048
  8. MULTIVITAMIN [Concomitant]
     Active Substance: VITAMINS
     Route: 048
  9. ASPRIN [Concomitant]
     Active Substance: ASPIRIN
     Route: 048
  10. QVAR [Concomitant]
     Active Substance: BECLOMETHASONE DIPROPIONATE
     Indication: IDIOPATHIC PULMONARY FIBROSIS
     Route: 055
     Dates: start: 201712
  11. CALCIUM [Concomitant]
     Active Substance: CALCIUM
     Route: 048
  12. VITAMIN C [Concomitant]
     Active Substance: ASCORBIC ACID
     Route: 048
  13. BEVESPI AEROSPHERE [Suspect]
     Active Substance: FORMOTEROL FUMARATE\GLYCOPYRROLATE
     Indication: IDIOPATHIC PULMONARY FIBROSIS
     Dosage: 9/4.8MCG TWO INHALATIONS TWICE A DAY
     Route: 055
     Dates: start: 201712

REACTIONS (14)
  - Product use in unapproved indication [Not Recovered/Not Resolved]
  - Wrong technique in product usage process [Unknown]
  - Urinary tract infection [Unknown]
  - Drug dose omission [Not Recovered/Not Resolved]
  - Rash [Unknown]
  - Off label use [Not Recovered/Not Resolved]
  - Device malfunction [Unknown]
  - Device failure [Unknown]
  - Cough [Unknown]
  - Dysphonia [Not Recovered/Not Resolved]
  - Intentional product misuse [Not Recovered/Not Resolved]
  - Aphonia [Unknown]
  - Dry throat [Unknown]
  - Idiopathic pulmonary fibrosis [Not Recovered/Not Resolved]

NARRATIVE: CASE EVENT DATE: 2017
